FAERS Safety Report 5892198-3 (Version None)
Quarter: 2008Q3

REPORT INFORMATION
  Report Type: 
  Country: None (occurrence: None)
  Receive Date: 20080918
  Receipt Date: 20080903
  Transmission Date: 20090109
  Serious: Yes (Hospitalization)
  Sender: FDA-Public Use
  Company Number: 2008S1016034

PATIENT
  Age: 57 Year
  Sex: Female

DRUGS (2)
  1. FLUCONAZOLE [Suspect]
     Indication: PNEUMONIA CRYPTOCOCCAL
  2. AMITRIPTYLINE HYDROCHLORIDE [Concomitant]

REACTIONS (2)
  - SYNCOPE [None]
  - TORSADE DE POINTES [None]
